FAERS Safety Report 17906008 (Version 1)
Quarter: 2020Q2

REPORT INFORMATION
  Report Type: Spontaneous
  Country: US (occurrence: US)
  Receive Date: 20200616
  Receipt Date: 20200616
  Transmission Date: 20200714
  Serious: No
  Sender: FDA-Public Use
  Company Number: US-ROCHE-2479636

PATIENT
  Sex: Female

DRUGS (14)
  1. ESCITALOPRAM [Concomitant]
     Active Substance: ESCITALOPRAM OXALATE
     Route: 065
  2. POLYMYXIN B;TRIMETHOPRIM [Concomitant]
  3. CLOPIDOGREL [Concomitant]
     Active Substance: CLOPIDOGREL BISULFATE
     Route: 065
  4. ELIQUIS [Concomitant]
     Active Substance: APIXABAN
     Route: 065
  5. FAMOTIDINE. [Concomitant]
     Active Substance: FAMOTIDINE
     Route: 065
  6. ACYCLOVIR [ACICLOVIR] [Concomitant]
     Active Substance: ACYCLOVIR
     Route: 065
  7. FLECAINIDE [Concomitant]
     Active Substance: FLECAINIDE
  8. CEPHALEXIN [CEFALEXIN] [Concomitant]
     Active Substance: CEPHALEXIN
     Route: 065
  9. CARVEDILOL. [Concomitant]
     Active Substance: CARVEDILOL
     Route: 065
  10. GABAPENTIN. [Concomitant]
     Active Substance: GABAPENTIN
     Route: 065
  11. AZITHROMYCIN ANHYDROUS. [Concomitant]
     Active Substance: AZITHROMYCIN ANHYDROUS
     Route: 065
  12. SIMVASTATIN. [Concomitant]
     Active Substance: SIMVASTATIN
     Route: 065
  13. ACTEMRA [Suspect]
     Active Substance: TOCILIZUMAB
     Indication: TEMPORAL ARTERITIS
     Dosage: INJECT 162 MG PFS SUBCUTANEOSLY EVERY 3 WEEKS; ONGOING : YES
     Route: 058
  14. NEOMYCIN SULPHATE [Concomitant]

REACTIONS (2)
  - Drug ineffective [Unknown]
  - Facial pain [Recovered/Resolved]
